FAERS Safety Report 14688248 (Version 2)
Quarter: 2018Q2

REPORT INFORMATION
  Report Type: Spontaneous
  Country: BR (occurrence: BR)
  Receive Date: 20180328
  Receipt Date: 20180612
  Transmission Date: 20180711
  Serious: Yes (Hospitalization)
  Sender: FDA-Public Use
  Company Number: BR-B.I. PHARMACEUTICALS,INC./RIDGEFIELD-2018-BI-015047

PATIENT
  Sex: Female
  Weight: 88 kg

DRUGS (12)
  1. VALSARTANA [Concomitant]
     Active Substance: VALSARTAN
     Indication: HYPERTENSION
     Route: 048
  2. ANLODIPINO [Concomitant]
     Active Substance: AMLODIPINE BESYLATE
     Indication: HYPERTENSION
     Route: 048
  3. GLIFAGE [Concomitant]
     Active Substance: METFORMIN HYDROCHLORIDE
     Indication: DIABETES MELLITUS
     Route: 048
     Dates: start: 2015
  4. CLORIDRATO/PROPANONA [Concomitant]
     Indication: CARDIAC DISORDER
     Route: 048
     Dates: start: 201802
  5. NIMESULIDA [Concomitant]
     Active Substance: NIMESULIDE
     Indication: SPINAL PAIN
     Route: 048
     Dates: start: 2015
  6. ATENSINA [Suspect]
     Active Substance: CLONIDINE
     Indication: HYPERTENSION
     Route: 048
     Dates: start: 2015
  7. SINVASTATINA [Concomitant]
     Active Substance: SIMVASTATIN
     Indication: CARDIAC DISORDER
     Route: 048
     Dates: start: 201802
  8. ATENSINA [Suspect]
     Active Substance: CLONIDINE
     Route: 065
     Dates: start: 201802
  9. ATENSINA [Suspect]
     Active Substance: CLONIDINE
     Route: 065
     Dates: start: 201802
  10. ELIQUIS [Concomitant]
     Active Substance: APIXABAN
     Indication: ANTICOAGULANT THERAPY
     Route: 048
     Dates: start: 201802
  11. OMEPRAZOL [Concomitant]
     Active Substance: OMEPRAZOLE
     Indication: GASTRIC DISORDER
     Route: 048
     Dates: start: 2013
  12. BROMAZEPAM [Concomitant]
     Active Substance: BROMAZEPAM
     Indication: SLEEP DISORDER
     Route: 048

REACTIONS (4)
  - Somnolence [Not Recovered/Not Resolved]
  - Thrombosis [Recovered/Resolved]
  - Drug ineffective [Not Recovered/Not Resolved]
  - Feeling of relaxation [Not Recovered/Not Resolved]

NARRATIVE: CASE EVENT DATE: 2015
